FAERS Safety Report 6738227-6 (Version None)
Quarter: 2010Q2

REPORT INFORMATION
  Report Type: 
  Country: None (occurrence: None)
  Receive Date: 20100524
  Receipt Date: 20100513
  Transmission Date: 20101027
  Serious: Yes (Hospitalization)
  Sender: FDA-Public Use
  Company Number: A0789998A

PATIENT
  Age: 48 Year
  Sex: Male

DRUGS (1)
  1. AVANDIA [Suspect]
     Indication: DIABETES MELLITUS
     Route: 048
     Dates: start: 20020712, end: 20060116

REACTIONS (5)
  - CARDIAC DISORDER [None]
  - CARDIOVASCULAR DISORDER [None]
  - CHEST DISCOMFORT [None]
  - CHEST PAIN [None]
  - MYOCARDIAL INFARCTION [None]
